FAERS Safety Report 23471159 (Version 2)
Quarter: 2024Q2

REPORT INFORMATION
  Report Type: Other
  Country: US (occurrence: US)
  Receive Date: 20240202
  Receipt Date: 20240419
  Transmission Date: 20240716
  Serious: Yes (Hospitalization, Other)
  Sender: FDA-Public Use
  Company Number: US-ALSI-2024000018

PATIENT
  Age: 44 Year
  Sex: Female

DRUGS (1)
  1. NITROUS OXIDE [Suspect]
     Active Substance: NITROUS OXIDE
     Indication: Drug abuse
     Route: 055

REACTIONS (4)
  - Subacute combined cord degeneration [Recovering/Resolving]
  - Anaemia megaloblastic [Unknown]
  - Vomiting [Unknown]
  - Nausea [Unknown]
